FAERS Safety Report 6318854-0 (Version None)
Quarter: 2009Q3

REPORT INFORMATION
  Report Type: 
  Country: None (occurrence: None)
  Receive Date: 20090821
  Receipt Date: 20090811
  Transmission Date: 20100115
  Serious: Yes (Hospitalization)
  Sender: FDA-Public Use
  Company Number: FR-ELI_LILLY_AND_COMPANY-FR200907005433

PATIENT
  Sex: Male
  Weight: 95 kg

DRUGS (7)
  1. CYMBALTA [Suspect]
     Indication: ANXIETY
     Dosage: 60 MG, DAILY (1/D)
     Route: 048
     Dates: start: 20090707, end: 20090708
  2. LEXOMIL [Concomitant]
     Dosage: 18 MG, DAILY (1/D)
     Route: 048
  3. ZYPREXA [Concomitant]
     Dosage: 20 MG, DAILY (1/D)
     Route: 048
  4. LOXAPAC [Concomitant]
     Dosage: 300 MG, DAILY (1/D)
     Route: 048
  5. LEPTICUR [Concomitant]
     Dosage: 20 MG, DAILY (1/D)
     Route: 048
  6. DEROXAT [Concomitant]
     Dosage: 30 MG, DAILY (1/D)
     Route: 048
     Dates: end: 20090707
  7. TERCIAN [Concomitant]
     Dosage: 200 MG IMPULSIVELY
     Route: 065
     Dates: start: 20090708

REACTIONS (1)
  - EPILEPSY [None]
